FAERS Safety Report 7494765-2 (Version None)
Quarter: 2011Q2

REPORT INFORMATION
  Report Type: 
  Country: None (occurrence: None)
  Receive Date: 20110520
  Receipt Date: 20110511
  Transmission Date: 20111010
  Serious: Yes (Hospitalization)
  Sender: FDA-Public Use
  Company Number: A0778119A

PATIENT
  Age: 52 Year
  Sex: Male

DRUGS (3)
  1. AVANDAMET [Suspect]
     Route: 048
     Dates: start: 20060701, end: 20070401
  2. AVANDARYL [Suspect]
     Route: 048
     Dates: start: 20060701, end: 20070401
  3. AVANDIA [Suspect]
     Route: 048
     Dates: start: 20020101, end: 20070401

REACTIONS (1)
  - MYOCARDIAL ISCHAEMIA [None]
